FAERS Safety Report 9877842 (Version 4)
Quarter: 2014Q1

REPORT INFORMATION
  Report Type: Report from Study
  Country: JP (occurrence: JP)
  Receive Date: 20140206
  Receipt Date: 20140306
  Transmission Date: 20141002
  Serious: Yes (Hospitalization)
  Sender: FDA-Public Use
  Company Number: JP-NOVOPROD-398541

PATIENT
  Age: 59 Year
  Sex: Male

DRUGS (11)
  1. NOVONORM [Suspect]
     Indication: TYPE 2 DIABETES MELLITUS
     Dosage: 0.75 MG, QD
     Route: 048
     Dates: start: 20121213, end: 20130501
  2. NOVONORM [Suspect]
     Dosage: 1.5 MG, QD
     Route: 048
     Dates: start: 20130502
  3. OLMETEC [Concomitant]
     Dosage: UNKNOWN
     Route: 048
  4. LIVALO [Concomitant]
     Dosage: UNKNOWN
     Route: 048
  5. ARTIST [Concomitant]
     Dosage: UNKNOWN
     Route: 048
  6. LASIX                              /00032601/ [Concomitant]
     Dosage: UNKNOWN
     Route: 065
  7. THYRADIN S [Concomitant]
     Dosage: UNKNOWN
     Route: 048
  8. EQUA [Concomitant]
     Dosage: UNKNOWN
     Route: 048
     Dates: start: 20130502
  9. ATELEC [Concomitant]
     Dosage: UNKNOWN
     Route: 048
     Dates: start: 20130905
  10. ADALAT [Concomitant]
     Dosage: UNK (CR)
     Route: 048
  11. BASEN                              /01290601/ [Concomitant]
     Dosage: UNK (OD)
     Route: 048
     Dates: start: 20121218

REACTIONS (1)
  - Acute myocardial infarction [Recovering/Resolving]
